FAERS Safety Report 21487836 (Version 1)
Quarter: 2022Q4

REPORT INFORMATION
  Report Type: Spontaneous
  Country: US (occurrence: US)
  Receive Date: 20221020
  Receipt Date: 20221020
  Transmission Date: 20230113
  Serious: No
  Sender: FDA-Public Use
  Company Number: US-NOVOPROD-375936

PATIENT
  Age: 63 Year
  Sex: Male

DRUGS (1)
  1. ESTRADIOL [Suspect]
     Active Substance: ESTRADIOL
     Indication: Exposure via partner
     Dosage: UNK
     Route: 067

REACTIONS (2)
  - Discomfort [Unknown]
  - Hypersensitivity [Unknown]
